FAERS Safety Report 20919241 (Version 1)
Quarter: 2022Q2

REPORT INFORMATION
  Report Type: Spontaneous
  Country: GB (occurrence: GB)
  Receive Date: 20220606
  Receipt Date: 20220606
  Transmission Date: 20220721
  Serious: Yes (Other)
  Sender: FDA-Public Use
  Company Number: None

PATIENT
  Age: 57 Year
  Sex: Male
  Weight: 100 kg

DRUGS (2)
  1. DULOXETINE [Suspect]
     Active Substance: DULOXETINE
     Indication: Neuralgia
     Dosage: UNKNOWN
     Route: 065
     Dates: end: 20220401
  2. PREGABALIN [Concomitant]
     Active Substance: PREGABALIN
     Indication: Product used for unknown indication
     Dosage: EVENTUALLY SETTLED ON 100MG TWICE A DAY
     Route: 065

REACTIONS (4)
  - Electric shock sensation [Recovered/Resolved with Sequelae]
  - Suicidal ideation [Recovering/Resolving]
  - Drug withdrawal syndrome [Unknown]
  - Product administration error [Unknown]

NARRATIVE: CASE EVENT DATE: 20220201
